FAERS Safety Report 10456977 (Version 3)
Quarter: 2014Q4

REPORT INFORMATION
  Report Type: Spontaneous
  Country: US (occurrence: US)
  Receive Date: 20140916
  Receipt Date: 20141024
  Transmission Date: 20150528
  Serious: No
  Sender: FDA-Public Use
  Company Number: US-PFIZER INC-2014256329

PATIENT
  Sex: Female

DRUGS (1)
  1. LYRICA [Suspect]
     Active Substance: PREGABALIN
     Dosage: ONE A DAY, TAKING THEM IN THE EVENING

REACTIONS (4)
  - Pain [Unknown]
  - Intentional product misuse [Unknown]
  - Malaise [Unknown]
  - Nasopharyngitis [Unknown]
